FAERS Safety Report 21226721 (Version 6)
Quarter: 2022Q4

REPORT INFORMATION
  Report Type: Report from Study
  Country: ES (occurrence: None)
  Receive Date: 20220818
  Receipt Date: 20221219
  Transmission Date: 20230113
  Serious: Yes (Hospitalization)
  Sender: FDA-Public Use
  Company Number: ES-ROCHE-3160565

PATIENT
  Age: 50 Year
  Sex: Male
  Weight: 99 kg

DRUGS (11)
  1. BEVACIZUMAB [Suspect]
     Active Substance: BEVACIZUMAB
     Indication: Hepatocellular carcinoma
     Dosage: ON 29/JUL/2022, LAST DOSE OF BEVACIZUMAB BEFORE AE.
     Route: 042
     Dates: start: 20211228
  2. ATEZOLIZUMAB [Suspect]
     Active Substance: ATEZOLIZUMAB
     Indication: Hepatocellular carcinoma
     Dosage: ON 29/JUL/2022, LAST DOSE OF ATEZOLIZUMAB BEFORE AE.
     Route: 041
     Dates: start: 20211228
  3. PYRIDOXINE\THIAMINE [Concomitant]
     Active Substance: PYRIDOXINE\THIAMINE
     Indication: Parkinson^s disease
     Route: 048
     Dates: start: 202007
  4. CLORAZEPATE DIPOTASSIUM [Concomitant]
     Active Substance: CLORAZEPATE DIPOTASSIUM
     Indication: Parkinson^s disease
     Route: 048
     Dates: start: 202007
  5. WILZIN [Concomitant]
     Active Substance: ZINC ACETATE
     Indication: Parkinson^s disease
     Route: 048
     Dates: start: 202007
  6. PROPRANOLOL [Concomitant]
     Active Substance: PROPRANOLOL HYDROCHLORIDE
     Indication: Hepatomegaly
     Route: 048
     Dates: start: 201904
  7. CYANOCOBALAMIN\FOLIC ACID [Concomitant]
     Active Substance: CYANOCOBALAMIN\FOLIC ACID
     Indication: Hepatomegaly
     Route: 048
     Dates: start: 201903
  8. FUROSEMIDE [Concomitant]
     Active Substance: FUROSEMIDE
     Indication: Hepatomegaly
     Route: 048
     Dates: start: 201903
  9. OMEPRAZOLE [Concomitant]
     Active Substance: OMEPRAZOLE
     Indication: Hepatomegaly
     Route: 048
     Dates: start: 201910
  10. SPIRONOLACTONE [Concomitant]
     Active Substance: SPIRONOLACTONE
     Indication: Hepatomegaly
     Route: 048
     Dates: start: 201912
  11. LACTULOSE [Concomitant]
     Active Substance: LACTULOSE
     Indication: Constipation
     Route: 048
     Dates: start: 20220922

REACTIONS (2)
  - Oesophageal varices haemorrhage [Recovered/Resolved]
  - Gastrointestinal haemorrhage [Recovered/Resolved]

NARRATIVE: CASE EVENT DATE: 20220810
